FAERS Safety Report 14805876 (Version 5)
Quarter: 2019Q4

REPORT INFORMATION
  Report Type: Spontaneous
  Country: FR (occurrence: FR)
  Receive Date: 20180425
  Receipt Date: 20191014
  Transmission Date: 20200122
  Serious: Yes (Death, Hospitalization)
  Sender: FDA-Public Use
  Company Number: FR-TEVA-2018-FR-883686

PATIENT
  Age: 0 Day
  Sex: Male
  Weight: 3.13 kg

DRUGS (3)
  1. COPAXONE [Suspect]
     Active Substance: GLATIRAMER ACETATE
     Indication: MULTIPLE SCLEROSIS
     Dosage: 20 MILLIGRAM DAILY;
     Route: 064
     Dates: start: 20170627
  2. KARDEGIC [Suspect]
     Active Substance: ASPIRIN DL-LYSINE
     Indication: PRODUCT USED FOR UNKNOWN INDICATION
     Dosage: 75 MILLIGRAM DAILY;
     Route: 064
     Dates: start: 20170627, end: 201802
  3. ALDOMET [Suspect]
     Active Substance: METHYLDOPA
     Indication: HYPERTENSION
     Dosage: 1000 MILLIGRAM DAILY;
     Route: 064
     Dates: start: 20170627

REACTIONS (2)
  - Multiple organ dysfunction syndrome [Fatal]
  - Neonatal anoxia [Fatal]

NARRATIVE: CASE EVENT DATE: 20180328
